FAERS Safety Report 8801432 (Version 2)
Quarter: 2013Q3

REPORT INFORMATION
  Report Type: Spontaneous
  Country: US (occurrence: US)
  Receive Date: 20120921
  Receipt Date: 20130708
  Transmission Date: 20140515
  Serious: Yes (Hospitalization)
  Sender: FDA-Public Use
  Company Number: US-BAYER-2012-097361

PATIENT
  Age: 50 Year
  Sex: Female
  Weight: 79 kg

DRUGS (5)
  1. BEYAZ [Suspect]
     Indication: MENSTRUAL CYCLE MANAGEMENT
     Dosage: 1 UNK, UNK
     Dates: start: 201101, end: 201111
  2. BEYAZ [Suspect]
     Indication: ACNE
  3. METOPROLOL SUCCINATE [Concomitant]
     Indication: PALPITATIONS
     Dosage: 25 TO 50 MG DAILY, UNK
     Dates: start: 20041018, end: 20120213
  4. METOPROLOL SUCCINATE [Concomitant]
     Indication: TACHYCARDIA
  5. VENLAFAXINE [Concomitant]
     Dosage: 75 MG,DAILY UNK
     Dates: start: 20091230, end: 20120213

REACTIONS (4)
  - Deep vein thrombosis [None]
  - Injury [None]
  - Pain [None]
  - Emotional distress [None]
